FAERS Safety Report 5105751-1 (Version None)
Quarter: 2006Q3

REPORT INFORMATION
  Report Type: 
  Country: None (occurrence: None)
  Receive Date: 20060915
  Receipt Date: 20060426
  Transmission Date: 20061208
  Serious: Yes (Hospitalization)
  Sender: FDA-Public Use
  Company Number: US-BRISTOL-MYERS SQUIBB COMPANY-13357751

PATIENT
  Age: 58 Year
  Sex: Female

DRUGS (8)
  1. CISPLATIN [Suspect]
     Dosage: CYCLE 1 STARTED 1 MAR 2006
     Route: 041
     Dates: start: 20060322, end: 20060322
  2. TS-1 [Suspect]
     Dosage: CYCLE 1: 01-MAR-2006
     Route: 048
     Dates: start: 20060322, end: 20060406
  3. LISINOPRIL [Concomitant]
     Indication: HYPERTENSION
     Route: 048
     Dates: start: 19960101
  4. LIPITOR [Concomitant]
     Indication: BLOOD CHOLESTEROL INCREASED
     Route: 048
     Dates: start: 19960101
  5. NORVASC [Concomitant]
     Indication: HYPERTENSION
     Route: 048
     Dates: start: 19960101
  6. HYDROCHLOROTHIAZIDE [Concomitant]
     Indication: OEDEMA PERIPHERAL
     Route: 048
     Dates: start: 19960101
  7. REMERON [Concomitant]
     Indication: DEPRESSION
     Route: 048
     Dates: start: 20060322
  8. MULTI-VITAMIN [Concomitant]
     Indication: NUTRITIONAL SUPPORT
     Dates: start: 20000101

REACTIONS (11)
  - AORTIC THROMBOSIS [None]
  - ASCITES [None]
  - DIARRHOEA [None]
  - FEBRILE NEUTROPENIA [None]
  - GASTROINTESTINAL OBSTRUCTION [None]
  - HAEMOGLOBIN DECREASED [None]
  - HYPOKALAEMIA [None]
  - HYPOMAGNESAEMIA [None]
  - HYPOPHOSPHATAEMIA [None]
  - HYPOTENSION [None]
  - VASCULAR CALCIFICATION [None]
